FAERS Safety Report 18530170 (Version 1)
Quarter: 2020Q4

REPORT INFORMATION
  Report Type: Spontaneous
  Country: US (occurrence: US)
  Receive Date: 20201120
  Receipt Date: 20201120
  Transmission Date: 20210114
  Serious: No
  Sender: FDA-Public Use
  Company Number: US-FRESENIUS KABI-FK202012299

PATIENT
  Age: 37 Year
  Sex: Male
  Weight: 113 kg

DRUGS (3)
  1. CHORIONIC GONADOTROPIN [Suspect]
     Active Substance: CHORIOGONADOTROPIN ALFA
     Indication: HYPOGONADISM
     Route: 030
     Dates: start: 20201021
  2. TESTOSTERONE. [Concomitant]
     Active Substance: TESTOSTERONE
     Indication: PRODUCT USED FOR UNKNOWN INDICATION
     Dosage: UNKNOWN
     Route: 065
  3. ANASTROZOLE. [Concomitant]
     Active Substance: ANASTROZOLE
     Indication: PRODUCT USED FOR UNKNOWN INDICATION
     Dosage: UNKNOWN
     Route: 065

REACTIONS (5)
  - Testicular atrophy [Recovering/Resolving]
  - Therapeutic product effect decreased [Recovering/Resolving]
  - Oligospermia [Recovering/Resolving]
  - Asthenia [Recovering/Resolving]
  - Impaired quality of life [Recovering/Resolving]

NARRATIVE: CASE EVENT DATE: 20201024
